FAERS Safety Report 7018489-0 (Version None)
Quarter: 2010Q3

REPORT INFORMATION
  Report Type: 
  Country: None (occurrence: None)
  Receive Date: 20100924
  Receipt Date: 20100921
  Transmission Date: 20110219
  Serious: Yes (Other)
  Sender: FDA-Public Use
  Company Number: TPA2010A05062

PATIENT
  Sex: Male

DRUGS (1)
  1. ACTOS [Suspect]
     Indication: DIABETES MELLITUS
     Dosage: 30 MG, PER ORAL
     Route: 048
     Dates: end: 20100701

REACTIONS (2)
  - BLADDER CANCER [None]
  - ECONOMIC PROBLEM [None]
